FAERS Safety Report 9708234 (Version 2)
Quarter: 2013Q4

REPORT INFORMATION
  Report Type: Spontaneous
  Country: US (occurrence: US)
  Receive Date: 20131125
  Receipt Date: 20131227
  Transmission Date: 20140711
  Serious: Yes (Life-Threatening, Other)
  Sender: FDA-Public Use
  Company Number: US-JNJFOC-20131112158

PATIENT
  Age: 63 Year
  Sex: Male
  Weight: 102.51 kg

DRUGS (3)
  1. INVOKANA [Suspect]
     Indication: TYPE 2 DIABETES MELLITUS
     Dates: start: 20131029, end: 20131102
  2. LANTUS [Concomitant]
  3. VICTOZA [Concomitant]
     Indication: TYPE 2 DIABETES MELLITUS
     Dates: start: 20131029

REACTIONS (8)
  - Bradycardia [Recovered/Resolved]
  - Syncope [Recovered/Resolved]
  - Dizziness [Recovered/Resolved]
  - Loss of consciousness [Recovered/Resolved]
  - Dehydration [Recovering/Resolving]
  - Polydipsia [Unknown]
  - Asthenia [Unknown]
  - Urine output increased [Unknown]
